FAERS Safety Report 13733678 (Version 1)
Quarter: 2017Q3

REPORT INFORMATION
  Report Type: Spontaneous
  Country: GB (occurrence: GB)
  Receive Date: 20170707
  Receipt Date: 20170707
  Transmission Date: 20171127
  Serious: Yes (Other)
  Sender: FDA-Public Use
  Company Number: GB-MYLANLABS-2017M1040169

PATIENT

DRUGS (3)
  1. LOSARTAN. [Suspect]
     Active Substance: LOSARTAN
     Indication: MYOCARDIAL INFARCTION
     Dosage: 50 MG, UNK
     Route: 048
     Dates: start: 20101015
  2. BISOPROLOL FUMARATE. [Concomitant]
     Active Substance: BISOPROLOL FUMARATE
  3. LOSARTAN. [Suspect]
     Active Substance: LOSARTAN
     Dosage: 25 MG, UNK
     Route: 048
     Dates: end: 20150515

REACTIONS (2)
  - Amnesia [Recovered/Resolved]
  - Balance disorder [Recovered/Resolved]
